FAERS Safety Report 8404103-6 (Version None)
Quarter: 2012Q2

REPORT INFORMATION
  Report Type: 
  Country: None (occurrence: None)
  Receive Date: 20120601
  Receipt Date: 20120531
  Transmission Date: 20120825
  Serious: Yes (Hospitalization, Congenital Anomaly, Other)
  Sender: FDA-Public Use
  Company Number: GXKR2012DE001883

PATIENT

DRUGS (1)
  1. PAROXETINE HCL [Suspect]
     Dosage: MATERNAL DOSE 45 MG, DAILY
     Route: 064

REACTIONS (8)
  - AGITATION [None]
  - FEELING JITTERY [None]
  - OXYGEN SATURATION ABNORMAL [None]
  - URACHAL ABNORMALITY [None]
  - HYPOGLYCAEMIA [None]
  - FOETAL EXPOSURE DURING PREGNANCY [None]
  - DYSPNOEA [None]
  - DRUG WITHDRAWAL SYNDROME NEONATAL [None]
